FAERS Safety Report 6748501-5 (Version None)
Quarter: 2010Q2

REPORT INFORMATION
  Report Type: 
  Country: None (occurrence: None)
  Receive Date: 20100527
  Receipt Date: 20100527
  Transmission Date: 20101027
  Serious: Yes (Life-Threatening, Hospitalization)
  Sender: FDA-Public Use
  Company Number: None

PATIENT
  Age: 65 Year
  Sex: Male
  Weight: 76 kg

DRUGS (1)
  1. ZYVOX [Suspect]
     Indication: OSTEOMYELITIS
     Dosage: 600MG TWICE DAILY PO
     Route: 048
     Dates: start: 20100401, end: 20100514

REACTIONS (2)
  - HAEMATEMESIS [None]
  - THROMBOCYTOPENIA [None]
